FAERS Safety Report 18191631 (Version 2)
Quarter: 2020Q3

REPORT INFORMATION
  Report Type: Spontaneous
  Country: DE (occurrence: DE)
  Receive Date: 20200825
  Receipt Date: 20200901
  Transmission Date: 20201103
  Serious: Yes (Disabling, Other)
  Sender: FDA-Public Use
  Company Number: DE-MSNLABS-2020MSNSPO00299

PATIENT

DRUGS (6)
  1. OXYCODON 5 MG RETARD [Concomitant]
     Indication: PRODUCT USED FOR UNKNOWN INDICATION
     Route: 065
     Dates: start: 201812, end: 201902
  2. PREGABALIN CAPSULES 75 MG [Suspect]
     Active Substance: PREGABALIN
     Indication: PRODUCT USED FOR UNKNOWN INDICATION
     Route: 048
     Dates: start: 201812, end: 201902
  3. PREGABALIN CAPSULES 75 MG [Suspect]
     Active Substance: PREGABALIN
     Indication: PRODUCT USED FOR UNKNOWN INDICATION
  4. NOVAMINSULFON 500 MG [Concomitant]
     Active Substance: METAMIZOLE
     Dosage: 2?2?2?2
     Route: 065
     Dates: start: 201812, end: 201902
  5. PREGABALIN CAPSULES 75 MG [Suspect]
     Active Substance: PREGABALIN
     Indication: NEURALGIA
  6. TILIDIN STADA 100 MG/8 MG RETARDTABLETTEN [Concomitant]
     Dosage: 1?0?2?0
     Route: 065
     Dates: start: 201812, end: 201902

REACTIONS (1)
  - Dupuytren^s contracture [Not Recovered/Not Resolved]

NARRATIVE: CASE EVENT DATE: 201909
